FAERS Safety Report 14391601 (Version 1)
Quarter: 2018Q1

REPORT INFORMATION
  Report Type: Report from Study
  Country: US (occurrence: US)
  Receive Date: 20180116
  Receipt Date: 20180116
  Transmission Date: 20180509
  Serious: Yes (Disabling)
  Sender: FDA-Public Use
  Company Number: US-BAYER-2018-002431

PATIENT
  Age: 61 Year
  Sex: Male

DRUGS (1)
  1. STIVARGA [Suspect]
     Active Substance: REGORAFENIB
     Indication: RECTAL CANCER
     Dosage: 120 MG DAILY DOSE, 1-21 DAYS EVERY 28 DAYS
     Route: 048
     Dates: start: 20171220, end: 20171223

REACTIONS (7)
  - Retching [Recovering/Resolving]
  - Insomnia [Recovering/Resolving]
  - Abnormal loss of weight [Recovering/Resolving]
  - Vomiting [Recovering/Resolving]
  - Off label use [None]
  - Dysstasia [Recovering/Resolving]
  - Malaise [Recovering/Resolving]

NARRATIVE: CASE EVENT DATE: 20171228
